FAERS Safety Report 18542132 (Version 2)
Quarter: 2021Q1

REPORT INFORMATION
  Report Type: Spontaneous
  Country: PT (occurrence: PT)
  Receive Date: 20201125
  Receipt Date: 20210308
  Transmission Date: 20210419
  Serious: Yes (Other)
  Sender: FDA-Public Use
  Company Number: PT-AUROBINDO-AUR-APL-2020-057922

PATIENT
  Age: 40 Year

DRUGS (1)
  1. KETOROLAC INJECTABLE SOLUTION [Suspect]
     Active Substance: KETOROLAC TROMETHAMINE
     Indication: NECK PAIN
     Dosage: 30 MILLIGRAM IN TOTAL (SINGLE DOSE)
     Route: 042
     Dates: start: 20201028, end: 20201028

REACTIONS (2)
  - Rash pruritic [Recovered/Resolved]
  - Lip oedema [Recovered/Resolved]

NARRATIVE: CASE EVENT DATE: 20201028
